FAERS Safety Report 10021287 (Version 1)
Quarter: 2014Q1

REPORT INFORMATION
  Report Type: Spontaneous
  Country: US (occurrence: US)
  Receive Date: 20140319
  Receipt Date: 20140319
  Transmission Date: 20141002
  Serious: Yes (Life-Threatening, Hospitalization)
  Sender: FDA-Public Use
  Company Number: US-MYLANLABS-2014S1005156

PATIENT
  Age: 85 Year
  Sex: Female

DRUGS (5)
  1. COTRIMOXAZOLE [Suspect]
     Indication: URINARY TRACT INFECTION
     Route: 065
  2. SOTALOL [Suspect]
     Route: 065
  3. VALSARTAN [Suspect]
     Route: 065
  4. SPIRONOLACTONE [Suspect]
     Route: 065
  5. WARFARIN [Suspect]
     Route: 065

REACTIONS (1)
  - Hyperkalaemia [Recovered/Resolved]
